FAERS Safety Report 17653579 (Version 8)
Quarter: 2020Q3

REPORT INFORMATION
  Report Type: Report from Study
  Country: US (occurrence: US)
  Receive Date: 20200409
  Receipt Date: 20200709
  Transmission Date: 20201102
  Serious: Yes (Death, Hospitalization, Other)
  Sender: FDA-Public Use
  Company Number: US-ACTELION-A-NJ2019-199802

PATIENT
  Age: 43 Year
  Sex: Female
  Weight: 102.49 kg

DRUGS (6)
  1. OXYGEN. [Concomitant]
     Active Substance: OXYGEN
     Dosage: 12 L
  2. OPSUMIT [Suspect]
     Active Substance: MACITENTAN
     Indication: PULMONARY HYPERTENSION
     Dosage: 10 MG, QD
     Route: 048
     Dates: start: 201911
  3. TYVASO [Suspect]
     Active Substance: TREPROSTINIL
     Indication: PRODUCT USED FOR UNKNOWN INDICATION
     Route: 065
  4. OXYGEN. [Concomitant]
     Active Substance: OXYGEN
     Dosage: 15 L
  5. SILDENAFIL CITRATE. [Concomitant]
     Active Substance: SILDENAFIL CITRATE
  6. REMODULIN [Concomitant]
     Active Substance: TREPROSTINIL

REACTIONS (35)
  - Hyperhidrosis [Unknown]
  - Tachycardia [Unknown]
  - Vomiting [Unknown]
  - Pain in extremity [Not Recovered/Not Resolved]
  - Dizziness exertional [Unknown]
  - Nausea [Unknown]
  - Oral pain [Not Recovered/Not Resolved]
  - Loss of consciousness [Unknown]
  - Disease progression [Unknown]
  - Hospitalisation [Unknown]
  - Constipation [Not Recovered/Not Resolved]
  - Throat irritation [Not Recovered/Not Resolved]
  - Infusion site pain [Unknown]
  - Asthenia [Not Recovered/Not Resolved]
  - Death [Fatal]
  - Dyspnoea [Unknown]
  - Syncope [Unknown]
  - Product dose omission issue [Unknown]
  - Therapy non-responder [Not Recovered/Not Resolved]
  - Oral discomfort [Not Recovered/Not Resolved]
  - Head discomfort [Unknown]
  - Diabetes mellitus [Unknown]
  - Candida infection [Unknown]
  - Abdominal pain upper [Unknown]
  - Condition aggravated [Not Recovered/Not Resolved]
  - Renal failure [Unknown]
  - Heart rate increased [Not Recovered/Not Resolved]
  - Oral candidiasis [Not Recovered/Not Resolved]
  - Tremor [Unknown]
  - Abdominal discomfort [Unknown]
  - Dizziness [Unknown]
  - Hypertension [Unknown]
  - Malaise [Unknown]
  - Fatigue [Not Recovered/Not Resolved]
  - Gastrointestinal sounds abnormal [Unknown]

NARRATIVE: CASE EVENT DATE: 201911
